FAERS Safety Report 11191441 (Version 1)
Quarter: 2015Q2

REPORT INFORMATION
  Report Type: Other
  Country: DE (occurrence: DE)
  Receive Date: 20150616
  Receipt Date: 20150616
  Transmission Date: 20150821
  Serious: Yes (Other)
  Sender: FDA-Public Use
  Company Number: DE-SUN PHARMACEUTICAL INDUSTRIES LTD-2014SUN02105

PATIENT

DRUGS (7)
  1. VENLAFAXINE HYDROCHLORIDE 37.5MG TABLET [Suspect]
     Active Substance: VENLAFAXINE HYDROCHLORIDE
     Indication: EATING DISORDER
     Dosage: 75 MG, BID
     Route: 048
     Dates: start: 20130127, end: 20130921
  2. ZELDOX [Suspect]
     Active Substance: ZIPRASIDONE
     Indication: SCHIZOPHRENIA
     Dosage: 60 MG, QD
     Route: 048
     Dates: start: 20130127, end: 20130921
  3. VENLAFAXIN DURA 75 RET. [Suspect]
     Active Substance: VENLAFAXINE HYDROCHLORIDE
     Indication: EATING DISORDER
     Dosage: 75 MG, QD
     Route: 048
     Dates: start: 20130127, end: 20130921
  4. DOXEPIN [Suspect]
     Active Substance: DOXEPIN
     Indication: ANXIETY DISORDER
     Dosage: 50 MG, QD,
     Route: 048
     Dates: end: 201308
  5. AMITRIPTYLIN-NEURAXPHARM 100 [Suspect]
     Active Substance: AMITRIPTYLINE
     Dosage: 75 MG/DAY, AT THE BEGINNING OF THIRD TRIMESTER
     Route: 048
  6. AMITRIPTYLIN DURA 75 RET. [Suspect]
     Active Substance: AMITRIPTYLINE
     Indication: DEPRESSION
     Dosage: 75 MG, QD
     Route: 048
     Dates: start: 20130127, end: 20130921
  7. AMITRIPTYLIN-NEURAXPHARM 100 [Suspect]
     Active Substance: AMITRIPTYLINE
     Indication: DEPRESSION
     Dosage: 100 MG, QD, 0. - 28.4. GESTATIONAL WEEK
     Route: 048

REACTIONS (4)
  - Exposure during pregnancy [Unknown]
  - Cervical incompetence [Unknown]
  - Premature labour [Unknown]
  - Foetal monitoring abnormal [Recovered/Resolved]
